FAERS Safety Report 4376506-0 (Version None)
Quarter: 2004Q2

REPORT INFORMATION
  Report Type: 
  Country: None (occurrence: None)
  Receive Date: 20040611
  Receipt Date: 20040611
  Transmission Date: 20050107
  Serious: Yes (Other)
  Sender: FDA-Public Use
  Company Number: None

PATIENT
  Age: 75 Year
  Sex: Male
  Weight: 86.1834 kg

DRUGS (2)
  1. LEVETIRACETAM [Suspect]
     Indication: NEUROPATHY PERIPHERAL
     Dosage: BID 500 MG PO
     Route: 048
     Dates: start: 20040219, end: 20040301
  2. LEVETIRACETAM [Suspect]
     Indication: NEUROPATHY PERIPHERAL
     Dosage: BID 500 MG PO
     Route: 048
     Dates: start: 20040501

REACTIONS (1)
  - OEDEMA PERIPHERAL [None]
